FAERS Safety Report 18964873 (Version 2)
Quarter: 2021Q2

REPORT INFORMATION
  Report Type: Spontaneous
  Country: US (occurrence: US)
  Receive Date: 20210303
  Receipt Date: 20210412
  Transmission Date: 20210717
  Serious: No
  Sender: FDA-Public Use
  Company Number: US-EMERGENT BIOSOLUTIONS,-21000013SP

PATIENT
  Sex: Male

DRUGS (3)
  1. NARCAN [Suspect]
     Active Substance: NALOXONE HYDROCHLORIDE
     Indication: OVERDOSE
     Dosage: UNK
     Route: 065
     Dates: start: 20210119, end: 20210119
  2. HYDROCODONE [Concomitant]
     Active Substance: HYDROCODONE
     Dosage: UNK
     Route: 065
  3. NARCAN [Suspect]
     Active Substance: NALOXONE HYDROCHLORIDE
     Dosage: UNK
     Route: 065
     Dates: start: 20210119, end: 20210119

REACTIONS (1)
  - Device issue [Unknown]

NARRATIVE: CASE EVENT DATE: 20210119
